FAERS Safety Report 8262314-7 (Version None)
Quarter: 2012Q2

REPORT INFORMATION
  Report Type: 
  Country: None (occurrence: None)
  Receive Date: 20120405
  Receipt Date: 20120322
  Transmission Date: 20120825
  Serious: Yes (Hospitalization)
  Sender: FDA-Public Use
  Company Number: FR-JNJFOC-20120401997

PATIENT
  Sex: Female

DRUGS (7)
  1. QUETIAPINE [Interacting]
     Indication: BIPOLAR II DISORDER
     Route: 048
     Dates: start: 20120111
  2. TRIMEPRAZINE TARTRATE [Interacting]
     Indication: INSOMNIA
     Route: 048
     Dates: start: 20120111, end: 20120224
  3. ACUPAN [Interacting]
     Indication: PAIN
     Route: 048
     Dates: start: 20111201
  4. ACETAMINOPHEN AND TRAMADOL HCL [Suspect]
     Indication: PAIN
     Dosage: 3 DF DAILY
     Route: 048
  5. QUETIAPINE [Interacting]
     Route: 048
     Dates: start: 20120101
  6. XANAX [Interacting]
     Indication: ANXIETY
     Route: 048
     Dates: start: 20120111
  7. PRIMPERAN TAB [Concomitant]
     Indication: PRODUCT USED FOR UNKNOWN INDICATION
     Dates: start: 20110101

REACTIONS (9)
  - LOGORRHOEA [None]
  - FLIGHT OF IDEAS [None]
  - INSOMNIA [None]
  - IRRITABILITY [None]
  - ABNORMAL BEHAVIOUR [None]
  - AGITATION [None]
  - DRUG INTERACTION [None]
  - SUSPICIOUSNESS [None]
  - ANOSOGNOSIA [None]
